FAERS Safety Report 19827905 (Version 1)
Quarter: 2021Q3

REPORT INFORMATION
  Report Type: Report from Study
  Country: IT (occurrence: IT)
  Receive Date: 20210914
  Receipt Date: 20210914
  Transmission Date: 20211014
  Serious: Yes (Other)
  Sender: FDA-Public Use
  Company Number: IT-JNJFOC-20210917001

PATIENT

DRUGS (4)
  1. ADALIMUMAB [Suspect]
     Active Substance: ADALIMUMAB
     Indication: CROHN^S DISEASE
  2. REMICADE [Suspect]
     Active Substance: INFLIXIMAB
     Indication: COLITIS ULCERATIVE
     Route: 042
  3. REMICADE [Suspect]
     Active Substance: INFLIXIMAB
     Indication: CROHN^S DISEASE
  4. ADALIMUMAB [Suspect]
     Active Substance: ADALIMUMAB
     Indication: COLITIS ULCERATIVE
     Route: 065

REACTIONS (19)
  - Gastroenteritis Escherichia coli [Unknown]
  - Pharyngitis [Unknown]
  - Tinea infection [Unknown]
  - Tonsillitis [Unknown]
  - Giardiasis [Unknown]
  - Pneumonia [Unknown]
  - Bacteraemia [Unknown]
  - Urinary tract infection [Unknown]
  - Varicella zoster virus infection [Unknown]
  - Skin papilloma [Unknown]
  - Otitis media [Unknown]
  - Papilloma viral infection [Unknown]
  - Impetigo [Unknown]
  - Herpes simplex [Unknown]
  - Laryngitis [Unknown]
  - Erysipelas [Unknown]
  - Salmonellosis [Unknown]
  - Folliculitis [Unknown]
  - Molluscum contagiosum [Unknown]
